FAERS Safety Report 11070540 (Version 7)
Quarter: 2016Q1

REPORT INFORMATION
  Report Type: Report from Study
  Country: US (occurrence: US)
  Receive Date: 20150427
  Receipt Date: 20160211
  Transmission Date: 20160525
  Serious: Yes (Hospitalization)
  Sender: FDA-Public Use
  Company Number: US-AMGEN-USASL2015032651

PATIENT
  Age: 73 Year
  Sex: Male

DRUGS (6)
  1. AMBIEN CR [Concomitant]
     Active Substance: ZOLPIDEM TARTRATE
     Indication: SLEEP DISORDER
     Dosage: UNK
  2. KYPROLIS [Suspect]
     Active Substance: CARFILZOMIB
     Indication: PLASMA CELL LEUKAEMIA
     Dosage: UNK UNK, 2 TIMES/WK
     Route: 042
     Dates: start: 20150318
  3. DEXAMETHASONE. [Concomitant]
     Active Substance: DEXAMETHASONE
     Dosage: UNK
     Dates: start: 20150313
  4. KYPROLIS [Suspect]
     Active Substance: CARFILZOMIB
     Indication: PLASMA CELL MYELOMA
     Dosage: UNK
     Route: 065
     Dates: start: 2015, end: 20160106
  5. KLONOPIN [Concomitant]
     Active Substance: CLONAZEPAM
     Indication: SLEEP DISORDER
     Dosage: UNK
  6. REVLIMID [Concomitant]
     Active Substance: LENALIDOMIDE
     Indication: PLASMA CELL MYELOMA
     Dosage: UNK
     Dates: start: 20150313

REACTIONS (18)
  - Blood pressure abnormal [Recovering/Resolving]
  - Cardiac disorder [Not Recovered/Not Resolved]
  - Muscle spasms [Not Recovered/Not Resolved]
  - Coronary artery disease [Unknown]
  - Peripheral swelling [Not Recovered/Not Resolved]
  - Pneumonia [Unknown]
  - Fatigue [Unknown]
  - Myocardial infarction [Recovered/Resolved]
  - Blood potassium decreased [Recovered/Resolved]
  - Cardiac failure congestive [Not Recovered/Not Resolved]
  - Back injury [Unknown]
  - Blood sodium decreased [Recovered/Resolved]
  - Cardiac failure chronic [Recovering/Resolving]
  - Hospitalisation [Unknown]
  - Dehydration [Unknown]
  - Asthenia [Unknown]
  - Disease progression [Unknown]
  - Hypotension [Unknown]

NARRATIVE: CASE EVENT DATE: 2015
